FAERS Safety Report 11211353 (Version 1)
Quarter: 2015Q2

REPORT INFORMATION
  Report Type: Spontaneous
  Country: PT (occurrence: PT)
  Receive Date: 20150623
  Receipt Date: 20150623
  Transmission Date: 20150821
  Serious: Yes (Hospitalization, Other)
  Sender: FDA-Public Use
  Company Number: PT-PAR PHARMACEUTICAL, INC-2015SCPR014068

PATIENT

DRUGS (3)
  1. VENLAFAXINE HYDROCHLORIDE. [Suspect]
     Active Substance: VENLAFAXINE HYDROCHLORIDE
     Indication: DEPRESSION
     Dosage: UNK UNK, UNKNOWN
     Route: 065
  2. FUCUS VESICULOSUS [Interacting]
     Active Substance: FUCUS VESICULOSUS
     Indication: WEIGHT CONTROL
     Dosage: UNK UNK, UNKNOWN
     Route: 065
  3. CENTELLA ASIATICA [Interacting]
     Active Substance: CENTELLA ASIATICA
     Indication: WEIGHT CONTROL
     Dosage: UNK UNK, UNKNOWN
     Route: 065

REACTIONS (8)
  - Cardiac failure [Recovering/Resolving]
  - Hypotension [Recovering/Resolving]
  - Phospholipidosis [Unknown]
  - Interstitial lung disease [Recovering/Resolving]
  - Drug interaction [Unknown]
  - Myalgia [Unknown]
  - Congestive cardiomyopathy [Recovering/Resolving]
  - Ejection fraction decreased [Unknown]
